FAERS Safety Report 12652500 (Version 1)
Quarter: 2016Q3

REPORT INFORMATION
  Report Type: Report from Study
  Country: PT (occurrence: PT)
  Receive Date: 20160815
  Receipt Date: 20160815
  Transmission Date: 20161109
  Serious: Yes (Other)
  Sender: FDA-Public Use
  Company Number: PT-GILEAD-2016-0228059

PATIENT
  Sex: Female

DRUGS (1)
  1. LEDIPASVIR/SOFOSBUVIR [Suspect]
     Active Substance: LEDIPASVIR\SOFOSBUVIR
     Indication: PRODUCT USED FOR UNKNOWN INDICATION
     Dosage: UNK
     Route: 065
     Dates: start: 20150415, end: 20150930

REACTIONS (5)
  - Ascites [Unknown]
  - Upper gastrointestinal haemorrhage [Unknown]
  - Oesophageal varices haemorrhage [Unknown]
  - Anaemia [Unknown]
  - Duodenal ulcer [Unknown]
